FAERS Safety Report 10240173 (Version 1)
Quarter: 2014Q2

REPORT INFORMATION
  Report Type: Report from Study
  Country: CA (occurrence: CA)
  Receive Date: 20140617
  Receipt Date: 20140617
  Transmission Date: 20141212
  Serious: Yes (Other)
  Sender: FDA-Public Use
  Company Number: CA-UCBSA-2014001760

PATIENT
  Age: 59 Year
  Sex: Male
  Weight: 70.5 kg

DRUGS (12)
  1. CERTOLIZUMAB PEGOL RA [Suspect]
     Indication: RHEUMATOID ARTHRITIS
     Dosage: 200 MG, EV 2 WEEKS(QOW)
     Route: 058
     Dates: start: 20121101, end: 20140609
  2. CERTOLIZUMAB PEGOL RA [Suspect]
     Dosage: 400 MG, EV 2 WEEKS(QOW)
     Route: 058
     Dates: start: 20120920, end: 20121018
  3. METHOTREXATE [Concomitant]
     Indication: RHEUMATOID ARTHRITIS
     Dosage: 25 MG, WEEKLY (QW)
     Route: 058
     Dates: start: 2010
  4. FOLIC ACID [Concomitant]
     Indication: SUPPLEMENTATION THERAPY
     Dosage: 5 MG, OD 6/7
     Route: 048
     Dates: start: 2010
  5. PLAQUENIL [Concomitant]
     Indication: RHEUMATOID ARTHRITIS
     Dosage: 200 MG, 2X/DAY (BID)
     Route: 048
     Dates: start: 2007
  6. PREDNISONE [Concomitant]
     Indication: RHEUMATOID ARTHRITIS
     Dosage: 5/7.5 MG ALTERNATING
     Route: 048
     Dates: start: 2011
  7. NEXIUM [Concomitant]
     Indication: PROPHYLAXIS
     Dosage: 40 MG, ONCE DAILY (QD)
     Route: 048
     Dates: start: 2007
  8. FENTANYL [Concomitant]
     Indication: BACK PAIN
     Dosage: 100 ?G, Q2.5DAYS
     Dates: start: 2004
  9. OXYCONTIN [Concomitant]
     Indication: BACK PAIN
     Dosage: 10 MG, PRN
     Route: 048
     Dates: start: 2003
  10. AMITRIPTYLINE [Concomitant]
     Indication: BACK PAIN
     Dosage: 50 MG,HS
     Route: 048
     Dates: start: 2002
  11. DEXADRIN [Concomitant]
     Indication: NARCOLEPSY
     Dosage: 20 MG QAM/NOON
     Route: 048
     Dates: start: 1985
  12. DEXADRIN [Concomitant]
     Dosage: 15MG 4PM
     Route: 048
     Dates: start: 1985

REACTIONS (2)
  - Basal cell carcinoma [Unknown]
  - Drug ineffective [Unknown]
